FAERS Safety Report 8183510-3 (Version None)
Quarter: 2012Q1

REPORT INFORMATION
  Report Type: 
  Country: None (occurrence: None)
  Receive Date: 20120305
  Receipt Date: 20120224
  Transmission Date: 20120608
  Serious: Yes (Hospitalization, Other)
  Sender: FDA-Public Use
  Company Number: US-BAYER-2011-105676

PATIENT
  Age: 23 Year
  Sex: Female
  Weight: 86 kg

DRUGS (10)
  1. NORGESTIMATE AND ETHINYL ESTRADIOL [Concomitant]
     Indication: CONTRACEPTION
     Dosage: UNK
     Dates: start: 20090323, end: 20090626
  2. KARIVA [Concomitant]
     Indication: CONTRACEPTION
     Dosage: UNK
     Dates: start: 20080331, end: 20090306
  3. TRI-SPRINTEC [Concomitant]
     Dosage: UNK
     Dates: start: 20090331, end: 20090724
  4. ORTHO TRI-CYCLEN LO [Concomitant]
     Dosage: UNK
     Dates: start: 20090727
  5. ASCORBIC ACID [Concomitant]
     Dosage: UNK
     Dates: start: 19890101
  6. PAXIL [Concomitant]
     Indication: ANXIETY
  7. LEVOTHYROXINE SODIUM [Concomitant]
     Indication: HYPOTHYROIDISM
  8. YASMIN [Suspect]
     Indication: ACNE
     Dosage: UNK
     Dates: start: 20030924, end: 20060626
  9. EXCEDRIN (MIGRAINE) [Concomitant]
     Dosage: UNK
     Dates: start: 20000101
  10. YASMIN [Suspect]
     Indication: MENORRHAGIA
     Dosage: UNK
     Dates: start: 20070302, end: 20080228

REACTIONS (13)
  - CHOLELITHIASIS [None]
  - CHOLECYSTITIS CHRONIC [None]
  - INJURY [None]
  - EMOTIONAL DISTRESS [None]
  - THROMBOSIS [None]
  - COLITIS [None]
  - DEPRESSION [None]
  - TRANSIENT ISCHAEMIC ATTACK [None]
  - HEPATIC ADENOMA [None]
  - GALLBLADDER DISORDER [None]
  - ANXIETY [None]
  - PAIN [None]
  - ABDOMINAL PAIN [None]
